FAERS Safety Report 7002146-0 (Version None)
Quarter: 2010Q3

REPORT INFORMATION
  Report Type: 
  Country: None (occurrence: None)
  Receive Date: 20100920
  Receipt Date: 20100315
  Transmission Date: 20110219
  Serious: No
  Sender: FDA-Public Use
  Company Number: US-ASTRAZENECA-2010SE11514

PATIENT
  Age: 32 Year
  Sex: Female

DRUGS (4)
  1. SEROQUEL [Suspect]
     Indication: BIPOLAR DISORDER
     Route: 048
  2. AMBIEN [Concomitant]
  3. XANAX [Concomitant]
  4. ZOLOFT [Concomitant]

REACTIONS (2)
  - FEELING JITTERY [None]
  - TRANCE [None]
